FAERS Safety Report 8085478-7 (Version None)
Quarter: 2012Q1

REPORT INFORMATION
  Report Type: 
  Country: None (occurrence: None)
  Receive Date: 20120128
  Receipt Date: 20110419
  Transmission Date: 20120608
  Serious: No
  Sender: FDA-Public Use
  Company Number: US-ABBOTT-11P-163-0707971-00

PATIENT
  Sex: Female
  Weight: 68.1 kg

DRUGS (17)
  1. FLEXERIL [Concomitant]
  2. LEVOTHYROXINE SODIUM [Concomitant]
     Indication: PRODUCT USED FOR UNKNOWN INDICATION
     Route: 048
  3. PROPRANOLOL [Concomitant]
     Indication: PRODUCT USED FOR UNKNOWN INDICATION
     Route: 048
  4. WELLBUTRIN [Concomitant]
     Indication: PRODUCT USED FOR UNKNOWN INDICATION
     Route: 048
  5. IMITREX [Concomitant]
     Indication: MIGRAINE
  6. ESTRADIOL [Concomitant]
     Indication: PRODUCT USED FOR UNKNOWN INDICATION
     Route: 048
  7. FLEXERIL [Concomitant]
     Indication: PRODUCT USED FOR UNKNOWN INDICATION
     Dosage: 2-10MG TABS AT HS
  8. HUMIRA [Suspect]
     Dates: start: 20110223, end: 20110223
  9. HUMIRA [Suspect]
     Indication: PSORIATIC ARTHROPATHY
     Dates: start: 20110216, end: 20110216
  10. CLONAZEPAM [Concomitant]
     Indication: PRODUCT USED FOR UNKNOWN INDICATION
  11. PROZAC [Concomitant]
     Route: 048
  12. HUMIRA [Suspect]
     Dosage: 1 EVERY 2 WEEKS ON WEDNESDAY
     Route: 058
     Dates: start: 20101231
  13. ESTRIC PLUS [Concomitant]
     Indication: HEADACHE
  14. LEVOTHYROXINE SODIUM [Concomitant]
  15. WELLBUTRIN [Concomitant]
     Route: 048
  16. PROZAC [Concomitant]
     Indication: PRODUCT USED FOR UNKNOWN INDICATION
     Route: 048
  17. CYCLOBENZAR [Concomitant]
     Indication: PRODUCT USED FOR UNKNOWN INDICATION
     Route: 048

REACTIONS (5)
  - INJECTION SITE WARMTH [None]
  - INJECTION SITE PRURITUS [None]
  - HEADACHE [None]
  - INJECTION SITE PAIN [None]
  - INJECTION SITE ERYTHEMA [None]
